FAERS Safety Report 18775386 (Version 3)
Quarter: 2022Q2

REPORT INFORMATION
  Report Type: Spontaneous
  Country: BR (occurrence: BR)
  Receive Date: 20210122
  Receipt Date: 20220628
  Transmission Date: 20220720
  Serious: Yes (Other)
  Sender: FDA-Public Use
  Company Number: BR-GSKCCFAMERS-CASE-00947316_AE-56178

PATIENT

DRUGS (4)
  1. WELLBUTRIN [Suspect]
     Active Substance: BUPROPION HYDROCHLORIDE
     Indication: Depression
     Dosage: 1 DF, QD, TABLET
     Dates: start: 2009
  2. LAMICTAL [Suspect]
     Active Substance: LAMOTRIGINE
     Indication: Depression
     Dosage: 300 MG, QD
     Dates: start: 2009
  3. RIVOTRIL [Concomitant]
     Active Substance: CLONAZEPAM
     Indication: Anxiety
     Dosage: UNK
  4. QUETIAPINE [Concomitant]
     Active Substance: QUETIAPINE
     Indication: Anxiety
     Dosage: UNK

REACTIONS (8)
  - Diabetes mellitus [Not Recovered/Not Resolved]
  - Hypothyroidism [Not Recovered/Not Resolved]
  - Illness [Unknown]
  - Head discomfort [Not Recovered/Not Resolved]
  - Memory impairment [Unknown]
  - Ill-defined disorder [Unknown]
  - Blood pressure increased [Unknown]
  - Pruritus [Unknown]
